FAERS Safety Report 25878226 (Version 1)
Quarter: 2025Q4

REPORT INFORMATION
  Report Type: Spontaneous
  Country: EU (occurrence: EU)
  Receive Date: 20251003
  Receipt Date: 20251003
  Transmission Date: 20260117
  Serious: Yes (Other)
  Sender: RANBAXY
  Company Number: EU-AFSSAPS-BS2025000463

PATIENT
  Age: 57 Year
  Sex: Male
  Weight: 122 kg

DRUGS (2)
  1. QUETIAPINE [Suspect]
     Active Substance: QUETIAPINE
     Indication: Bipolar disorder
     Dosage: 150 MILLIGRAM, DAILY
     Route: 048
     Dates: start: 20250310, end: 20250428
  2. QUETIAPINE [Suspect]
     Active Substance: QUETIAPINE
     Indication: Product used for unknown indication
     Dosage: UNK
     Route: 065

REACTIONS (3)
  - Hypertriglyceridaemia [Recovering/Resolving]
  - Hypercholesterolaemia [Recovering/Resolving]
  - Product supply issue [Recovering/Resolving]

NARRATIVE: CASE EVENT DATE: 20250310
